FAERS Safety Report 16189339 (Version 1)
Quarter: 2019Q2

REPORT INFORMATION
  Report Type: Spontaneous
  Country: US (occurrence: US)
  Receive Date: 20190308
  Receipt Date: 20190308
  Transmission Date: 20190711
  Serious: Yes (Disabling)
  Sender: FDA-Public Use
  Company Number: None

PATIENT
  Age: 64 Year
  Sex: Male

DRUGS (1)
  1. LATANOPROST. [Suspect]
     Active Substance: LATANOPROST
     Indication: GLAUCOMA
     Dosage: ?          OTHER FREQUENCY:EVENING;?
     Route: 047
     Dates: start: 20130923

REACTIONS (3)
  - Drug ineffective [None]
  - Intraocular pressure increased [None]
  - Therapeutic response changed [None]

NARRATIVE: CASE EVENT DATE: 20130923
